FAERS Safety Report 11934923 (Version 1)
Quarter: 2016Q1

REPORT INFORMATION
  Report Type: Spontaneous
  Country: US (occurrence: US)
  Receive Date: 20160121
  Receipt Date: 20160121
  Transmission Date: 20160526
  Serious: No
  Sender: FDA-Public Use
  Company Number: US-JNJFOC-20151215721

PATIENT
  Sex: Female

DRUGS (1)
  1. TRINESSA [Suspect]
     Active Substance: ETHINYL ESTRADIOL\NORGESTIMATE
     Indication: PRODUCT USED FOR UNKNOWN INDICATION
     Dosage: 0.18/0.035;0.215/0.035;0.25/0.035
     Route: 048

REACTIONS (2)
  - Amenorrhoea [Unknown]
  - Drug dose omission [Unknown]
